FAERS Safety Report 13066604 (Version 1)
Quarter: 2016Q4

REPORT INFORMATION
  Report Type: Spontaneous
  Country: US (occurrence: US)
  Receive Date: 20161227
  Receipt Date: 20161227
  Transmission Date: 20170207
  Serious: Yes (Hospitalization)
  Sender: FDA-Public Use
  Company Number: US-LANNETT COMPANY, INC.-US-2016LAN001835

PATIENT
  Age: 33 Year
  Sex: Male

DRUGS (1)
  1. RISPERIDONE. [Suspect]
     Active Substance: RISPERIDONE
     Indication: SCHIZOPHRENIA
     Dosage: UNK

REACTIONS (17)
  - Pyelonephritis [Recovering/Resolving]
  - Hydronephrosis [Recovering/Resolving]
  - Renal abscess [Recovering/Resolving]
  - Tachycardia [Recovering/Resolving]
  - Bladder dilatation [Recovering/Resolving]
  - Intestinal dilatation [Recovering/Resolving]
  - Colitis ischaemic [Recovering/Resolving]
  - Urinary retention [Recovering/Resolving]
  - Hypophagia [Recovering/Resolving]
  - Weight decreased [Recovering/Resolving]
  - Diarrhoea [Recovering/Resolving]
  - Abdominal rigidity [Recovering/Resolving]
  - Mass [Recovering/Resolving]
  - Abdominal pain [Recovering/Resolving]
  - Constipation [Recovering/Resolving]
  - Faecaloma [Recovering/Resolving]
  - Pyrexia [Recovering/Resolving]
